FAERS Safety Report 9190212 (Version 1)
Quarter: 2013Q1

REPORT INFORMATION
  Report Type: Spontaneous
  Country: US (occurrence: None)
  Receive Date: 20120703
  Receipt Date: 20120703
  Transmission Date: 20140127
  Serious: No
  Sender: FDA-Public Use
  Company Number: PHEH2012US007734

PATIENT
  Age: 36 Year
  Sex: Female

DRUGS (1)
  1. GILENYA (FTY) CAPSULE, 0.5MG [Suspect]
     Route: 048
     Dates: start: 20120406

REACTIONS (6)
  - Pulmonary congestion [None]
  - Fatigue [None]
  - Somnolence [None]
  - Chest pain [None]
  - Cough [None]
  - Nasopharyngitis [None]
